FAERS Safety Report 8317659-9 (Version None)
Quarter: 2012Q2

REPORT INFORMATION
  Report Type: 
  Country: None (occurrence: None)
  Receive Date: 20120427
  Receipt Date: 20120418
  Transmission Date: 20120825
  Serious: Yes (Other)
  Sender: FDA-Public Use
  Company Number: CA-BRISTOL-MYERS SQUIBB COMPANY-16542144

PATIENT
  Age: 73 Year
  Sex: Female

DRUGS (5)
  1. HYDROMORPHONE HCL [Concomitant]
  2. ORENCIA [Suspect]
     Indication: RHEUMATOID ARTHRITIS
     Dosage: NO OF INF: 16,LAST INFUSION 18APR12
     Route: 042
     Dates: start: 20110127
  3. PREDNISONE [Concomitant]
  4. ZOPICLONE [Concomitant]
  5. ACTONEL [Concomitant]

REACTIONS (2)
  - ATRIAL FIBRILLATION [None]
  - OEDEMA PERIPHERAL [None]
